FAERS Safety Report 24252029 (Version 1)
Quarter: 2024Q3

REPORT INFORMATION
  Report Type: Spontaneous
  Country: US (occurrence: US)
  Receive Date: 20240827
  Receipt Date: 20240827
  Transmission Date: 20241017
  Serious: Yes (Other)
  Sender: DR REDDYS
  Company Number: US-DRL-USA-SPO/USA/24/0012120

PATIENT
  Age: 22 Year
  Sex: Female

DRUGS (9)
  1. DIVALPROEX SODIUM [Suspect]
     Active Substance: DIVALPROEX SODIUM
     Indication: Schizoaffective disorder bipolar type
     Dosage: THREE TIMES A DAY FOR 20?WEEKS
     Dates: start: 201612, end: 201705
  2. DIVALPROEX SODIUM [Suspect]
     Active Substance: DIVALPROEX SODIUM
     Dosage: 32 WEEKS
     Dates: start: 201705, end: 201801
  3. RISPERIDONE [Suspect]
     Active Substance: RISPERIDONE
     Indication: Schizoaffective disorder bipolar type
     Dosage: 6WEEKS
     Dates: start: 201703, end: 201705
  4. RISPERIDONE [Suspect]
     Active Substance: RISPERIDONE
     Dosage: 36 WEEKS
     Dates: start: 201705, end: 201803
  5. QUETIAPINE [Suspect]
     Active Substance: QUETIAPINE
     Indication: Schizoaffective disorder bipolar type
     Dosage: 100MG DAILY FOR 32?WEEKS
     Dates: start: 202006, end: 202102
  6. QUETIAPINE [Suspect]
     Active Substance: QUETIAPINE
     Dosage: 800MG DAILY FOR 4?WEEKS
     Dates: start: 202108, end: 202109
  7. PALIPERIDONE [Suspect]
     Active Substance: PALIPERIDONE
     Indication: Schizoaffective disorder bipolar type
     Dosage: 10 WEEKS
  8. PALIPERIDONE [Suspect]
     Active Substance: PALIPERIDONE
  9. PALIPERIDONE PALMITATE [Suspect]
     Active Substance: PALIPERIDONE PALMITATE
     Indication: Schizoaffective disorder bipolar type
     Dosage: LONG-ACTING INJECTION

REACTIONS (12)
  - Condition aggravated [Unknown]
  - Drug resistance [Unknown]
  - Somnolence [Unknown]
  - Oedema peripheral [Unknown]
  - Product use in unapproved indication [Unknown]
  - Fatigue [Recovered/Resolved]
  - Somnolence [Unknown]
  - Disturbance in attention [Unknown]
  - Increased appetite [Unknown]
  - Peripheral swelling [Unknown]
  - Weight increased [Recovered/Resolved]
  - Treatment noncompliance [Unknown]
